FAERS Safety Report 15747393 (Version 3)
Quarter: 2019Q1

REPORT INFORMATION
  Report Type: Spontaneous
  Country: JP (occurrence: JP)
  Receive Date: 20181220
  Receipt Date: 20190221
  Transmission Date: 20190417
  Serious: Yes (Death, Other)
  Sender: FDA-Public Use
  Company Number: JP-ELI_LILLY_AND_COMPANY-JP201811014150

PATIENT
  Age: 89 Year
  Sex: Female
  Weight: 41 kg

DRUGS (3)
  1. EQUA [Concomitant]
     Active Substance: VILDAGLIPTIN
     Dosage: UNK
     Route: 048
     Dates: start: 201805
  2. HUMULIN R [Suspect]
     Active Substance: INSULIN HUMAN
     Indication: HYPERGLYCAEMIA
     Dosage: 260 IU, OTHER
     Route: 042
     Dates: start: 20180918, end: 20180919
  3. SEIBULE [Concomitant]
     Active Substance: MIGLITOL
     Dosage: UNK
     Route: 048
     Dates: start: 201805

REACTIONS (2)
  - Hyperglycaemia [Not Recovered/Not Resolved]
  - Death [Fatal]

NARRATIVE: CASE EVENT DATE: 20180918
